FAERS Safety Report 23614013 (Version 1)
Quarter: 2024Q1

REPORT INFORMATION
  Report Type: Spontaneous
  Country: ES (occurrence: ES)
  Receive Date: 20240310
  Receipt Date: 20240310
  Transmission Date: 20240410
  Serious: Yes (Death, Life-Threatening, Hospitalization, Other)
  Sender: FDA-Public Use
  Company Number: ES-EMA-DD-20240227-7482677-062758

PATIENT
  Age: 54 Year
  Sex: Female

DRUGS (6)
  1. AMOXICILLIN [Suspect]
     Active Substance: AMOXICILLIN
     Indication: Product used for unknown indication
     Dosage: EMPTY BLISTERS
     Route: 065
  2. ACETAMINOPHEN [Suspect]
     Active Substance: ACETAMINOPHEN
     Indication: Product used for unknown indication
     Dosage: EMPTY BLISTERS
     Route: 065
  3. CLORAZEPATE DIPOTASSIUM [Suspect]
     Active Substance: CLORAZEPATE DIPOTASSIUM
     Indication: Product used for unknown indication
     Dosage: EMPTY BLISTERS
     Route: 065
  4. DEXKETOPROFEN [Suspect]
     Active Substance: DEXKETOPROFEN
     Indication: Product used for unknown indication
     Dosage: EMPTY BLISTERS
     Route: 065
  5. DICLOFENAC [Suspect]
     Active Substance: DICLOFENAC
     Indication: Product used for unknown indication
     Dosage: EMPTY BLISTERS
     Route: 065
  6. LORMETAZEPAM [Suspect]
     Active Substance: LORMETAZEPAM
     Indication: Product used for unknown indication
     Dosage: EMPTY BLISTERS
     Route: 065

REACTIONS (9)
  - Toxicity to various agents [Fatal]
  - Neutrophil toxic granulation present [Fatal]
  - Acute kidney injury [Fatal]
  - Shock [Fatal]
  - Hyperglycaemia [Fatal]
  - Metabolic acidosis [Fatal]
  - Pancreatic failure [Fatal]
  - Acute hepatic failure [Fatal]
  - Hepatic perfusion disorder [Fatal]
